FAERS Safety Report 12127034 (Version 1)
Quarter: 2016Q1

REPORT INFORMATION
  Report Type: Spontaneous
  Country: DE (occurrence: DE)
  Receive Date: 20160229
  Receipt Date: 20160229
  Transmission Date: 20160526
  Serious: Yes (Hospitalization)
  Sender: FDA-Public Use
  Company Number: DE-BAYER-2016-036614

PATIENT
  Age: 30 Year
  Sex: Female
  Weight: 58 kg

DRUGS (1)
  1. PETIBELLE [Suspect]
     Active Substance: DROSPIRENONE\ETHINYL ESTRADIOL
     Indication: ORAL CONTRACEPTION
     Dosage: 1 DF, QD
     Route: 048
     Dates: start: 2002, end: 2011

REACTIONS (1)
  - Adenoma benign [Not Recovered/Not Resolved]

NARRATIVE: CASE EVENT DATE: 2011
